FAERS Safety Report 5420695-3 (Version None)
Quarter: 2007Q3

REPORT INFORMATION
  Report Type: 
  Country: None (occurrence: None)
  Receive Date: 20070821
  Receipt Date: 20070814
  Transmission Date: 20080115
  Serious: Yes (Hospitalization, Other)
  Sender: FDA-Public Use
  Company Number: CA-ALLERGAN-0708925US

PATIENT
  Sex: Male

DRUGS (3)
  1. COMBIGAN [Suspect]
     Indication: DRUG USE FOR UNKNOWN INDICATION
     Dosage: UNK, UNKNOWN
     Route: 047
  2. LUMIGAN [Suspect]
     Indication: DRUG USE FOR UNKNOWN INDICATION
     Dosage: UNK, UNKNOWN
     Route: 047
  3. ALPHAGAN [Suspect]

REACTIONS (9)
  - CHEST PAIN [None]
  - DYSPNOEA [None]
  - EYE IRRITATION [None]
  - HEADACHE [None]
  - HYPOAESTHESIA [None]
  - LACRIMATION INCREASED [None]
  - NAUSEA [None]
  - PAIN IN JAW [None]
  - PALPITATIONS [None]
